FAERS Safety Report 8327865-5 (Version None)
Quarter: 2012Q2

REPORT INFORMATION
  Report Type: 
  Country: None (occurrence: None)
  Receive Date: 20120502
  Receipt Date: 20120423
  Transmission Date: 20120825
  Serious: Yes (Hospitalization)
  Sender: FDA-Public Use
  Company Number: US-BAYER-2011-082099

PATIENT
  Age: 45 Year
  Sex: Female
  Weight: 90.703 kg

DRUGS (15)
  1. YASMIN [Suspect]
     Indication: CONTRACEPTION
     Dosage: UNK
     Route: 048
     Dates: start: 20060103, end: 20070908
  2. PROPROXYPHENE [Concomitant]
     Dosage: 100/650MG
     Route: 048
     Dates: start: 20070907
  3. NAPROXEN (ALEVE) [Concomitant]
     Indication: MYALGIA
     Dosage: TWENTY DAYS PRIOR TO INJURY
     Route: 048
  4. PROCARDIA [Concomitant]
  5. NIFEDIPINE [Concomitant]
     Indication: HYPERTENSION
     Dosage: UNK
     Route: 048
     Dates: start: 20070301, end: 20080301
  6. HYDROCHLOROTHIAZIDE [Concomitant]
     Indication: HYPERTENSION
     Dosage: 12.5 MG, UNK
     Route: 048
     Dates: start: 20040601, end: 20080501
  7. YASMIN [Suspect]
     Indication: MENOMETRORRHAGIA
  8. YASMIN [Suspect]
     Indication: MENORRHAGIA
  9. PROVENTIL [Concomitant]
     Indication: ASTHMA
     Dosage: UNK
     Dates: start: 19700101
  10. TYLENOL (CAPLET) [Concomitant]
     Indication: MYALGIA
     Dosage: TWENTY DAYS PRIOR TO INJURY
     Route: 048
  11. LORTAB [Concomitant]
  12. IRON SULFATETHIAMIN COMPOUND TAB [Concomitant]
  13. POTASSIUM CHLORIDE [Concomitant]
  14. HYDROCODONE BITARTRATE [Concomitant]
     Indication: PAIN
     Dosage: UNK
     Route: 048
     Dates: start: 20050501, end: 20100601
  15. ASPIRIN [Concomitant]

REACTIONS (8)
  - PULMONARY EMBOLISM [None]
  - ANXIETY [None]
  - EMOTIONAL DISTRESS [None]
  - GENERAL PHYSICAL HEALTH DETERIORATION [None]
  - CHEST PAIN [None]
  - DEEP VEIN THROMBOSIS [None]
  - DYSPNOEA [None]
  - PAIN IN EXTREMITY [None]
